FAERS Safety Report 22654157 (Version 1)
Quarter: 2023Q2

REPORT INFORMATION
  Report Type: Report from Study
  Country: DE (occurrence: DE)
  Receive Date: 20230629
  Receipt Date: 20230629
  Transmission Date: 20230722
  Serious: Yes (Hospitalization)
  Sender: FDA-Public Use
  Company Number: DE-MYLANLABS-2023M1068261

PATIENT
  Age: 51 Year
  Sex: Male

DRUGS (7)
  1. AMLODIPINE [Suspect]
     Active Substance: AMLODIPINE BESYLATE
     Indication: Hypertension
     Dosage: UNK
     Route: 065
  2. CYCLOPHOSPHAMIDE [Suspect]
     Active Substance: CYCLOPHOSPHAMIDE
     Indication: Eosinophilic granulomatosis with polyangiitis
     Dosage: UNK
     Route: 065
  3. CYCLOPHOSPHAMIDE [Suspect]
     Active Substance: CYCLOPHOSPHAMIDE
     Indication: Immunosuppressant drug therapy
  4. METHOTREXATE [Suspect]
     Active Substance: METHOTREXATE
     Indication: Eosinophilic granulomatosis with polyangiitis
     Dosage: 20 MILLIGRAM, QW
     Route: 058
  5. METHOTREXATE [Suspect]
     Active Substance: METHOTREXATE
     Indication: Immunosuppressant drug therapy
     Dosage: AFTER 4 MONTHS, METHOTREXATE RESUMED
     Route: 058
  6. MEPOLIZUMAB [Concomitant]
     Active Substance: MEPOLIZUMAB
     Indication: Eosinophilic granulomatosis with polyangiitis
     Dosage: 300 MILLIGRAM, MONTHLY (INITIALLY DISCONTINUED)
     Route: 065
  7. MEPOLIZUMAB [Concomitant]
     Active Substance: MEPOLIZUMAB
     Dosage: INITIALLY DISCONTINUED LATER RESUMED
     Route: 065

REACTIONS (1)
  - Hepatitis E [Recovered/Resolved]
